FAERS Safety Report 8505385-2 (Version None)
Quarter: 2012Q2

REPORT INFORMATION
  Report Type: 
  Country: None (occurrence: None)
  Receive Date: 20120405
  Receipt Date: 20091014
  Transmission Date: 20120825
  Serious: Yes (Other)
  Sender: FDA-Public Use
  Company Number: PHEH2009US13785

PATIENT
  Age: 75 Year
  Sex: Female

DRUGS (9)
  1. METFORMIN HYDROCHLORIDE [Concomitant]
  2. PREVACID [Concomitant]
  3. EVISTA [Concomitant]
  4. VITAMIN D [Concomitant]
  5. CALCIUM [Concomitant]
  6. RECLAST [Suspect]
     Dosage: 5 MG,,IV INFUSION, IV INFUSION
     Route: 042
     Dates: start: 20090901, end: 20090901
  7. RECLAST [Suspect]
     Dosage: 5 MG,,IV INFUSION, IV INFUSION
     Route: 042
     Dates: start: 20080901, end: 20080901
  8. ACETSALICYLIC ACID [Concomitant]
  9. ZOLOFT [Concomitant]

REACTIONS (1)
  - BLOOD CREATININE INCREASED [None]
